FAERS Safety Report 15385092 (Version 1)
Quarter: 2018Q3

REPORT INFORMATION
  Report Type: Spontaneous
  Country: RU (occurrence: RU)
  Receive Date: 20180914
  Receipt Date: 20180914
  Transmission Date: 20181010
  Serious: Yes (Other)
  Sender: FDA-Public Use
  Company Number: RU-TEVA-2018-RU-954369

PATIENT
  Sex: Female

DRUGS (1)
  1. VALZ [Suspect]
     Active Substance: VALSARTAN
     Route: 065

REACTIONS (1)
  - Gastric ulcer [Unknown]
